FAERS Safety Report 10446599 (Version 1)
Quarter: 2014Q3

REPORT INFORMATION
  Report Type: Spontaneous
  Country: GB (occurrence: GB)
  Receive Date: 20140911
  Receipt Date: 20140911
  Transmission Date: 20150326
  Serious: Yes (Other)
  Sender: FDA-Public Use
  Company Number: GB-UCBSA-2014011074

PATIENT
  Age: 7 Year
  Sex: Male
  Weight: 45 kg

DRUGS (2)
  1. MIDAZOLAM [Concomitant]
     Active Substance: MIDAZOLAM\MIDAZOLAM HYDROCHLORIDE
     Dosage: UNK UNK, AS NEEDED (PRN)
  2. KEPPRA [Suspect]
     Active Substance: LEVETIRACETAM
     Dosage: 2.25 G, ONCE DAILY (QD)
     Route: 048

REACTIONS (3)
  - Pollakiuria [Not Recovered/Not Resolved]
  - Micturition urgency [Not Recovered/Not Resolved]
  - Inappropriate schedule of drug administration [Unknown]
